FAERS Safety Report 15145895 (Version 1)
Quarter: 2018Q3

REPORT INFORMATION
  Report Type: Spontaneous
  Country: SE (occurrence: SE)
  Receive Date: 20180714
  Receipt Date: 20180714
  Transmission Date: 20181010
  Serious: Yes (Other)
  Sender: FDA-Public Use
  Company Number: SE-TEVA-2018-SE-924427

PATIENT
  Age: 66 Year
  Sex: Female

DRUGS (1)
  1. DOXYFERM [Suspect]
     Active Substance: DOXYCYCLINE
     Indication: PNEUMONIA VIRAL
     Route: 065
     Dates: end: 20140226

REACTIONS (4)
  - Colitis microscopic [Unknown]
  - Drug intolerance [Not Recovered/Not Resolved]
  - Food intolerance [Not Recovered/Not Resolved]
  - Infection susceptibility increased [Unknown]

NARRATIVE: CASE EVENT DATE: 201402
